FAERS Safety Report 9798495 (Version 5)
Quarter: 2014Q3

REPORT INFORMATION
  Report Type: Report from Study
  Country: GB (occurrence: GB)
  Receive Date: 20140106
  Receipt Date: 20140728
  Transmission Date: 20150326
  Serious: Yes (Hospitalization)
  Sender: FDA-Public Use
  Company Number: GB-ALEXION PHARMACEUTICALS INC.-A201304712

PATIENT

DRUGS (6)
  1. SOLIRIS [Suspect]
     Active Substance: ECULIZUMAB
     Indication: PAROXYSMAL NOCTURNAL HAEMOGLOBINURIA
     Dosage: 600 MG, QW
     Route: 042
     Dates: start: 20130919, end: 20131010
  2. SOLIRIS [Suspect]
     Active Substance: ECULIZUMAB
     Dosage: 900 MG Q2W
     Route: 042
     Dates: start: 20130917
  3. SOLIRIS [Suspect]
     Active Substance: ECULIZUMAB
     Dosage: 900 MG,Q2W
     Route: 042
  4. AMOXICILLIN. [Concomitant]
     Active Substance: AMOXICILLIN
     Indication: TONSILLITIS
     Dosage: 500 TD, UNK
     Route: 048
  5. SOLIRIS [Suspect]
     Active Substance: ECULIZUMAB
     Dosage: 900 MG, Q2W
     Route: 042
     Dates: start: 20131017
  6. AMOXICILLIN. [Concomitant]
     Active Substance: AMOXICILLIN
     Indication: BRONCHOPNEUMONIA

REACTIONS (14)
  - Diarrhoea [Unknown]
  - Back pain [Not Recovered/Not Resolved]
  - Epistaxis [Unknown]
  - Jaundice [Unknown]
  - Chromaturia [Unknown]
  - Neutropenic sepsis [Recovered/Resolved]
  - Arthralgia [Unknown]
  - Arthralgia [Not Recovered/Not Resolved]
  - Peripheral swelling [Unknown]
  - Dyspnoea exertional [Not Recovered/Not Resolved]
  - Contusion [Not Recovered/Not Resolved]
  - Chromaturia [Not Recovered/Not Resolved]
  - Fatigue [Unknown]
  - Musculoskeletal stiffness [Unknown]

NARRATIVE: CASE EVENT DATE: 20131210
